FAERS Safety Report 18468796 (Version 1)
Quarter: 2020Q4

REPORT INFORMATION
  Report Type: Spontaneous
  Country: US (occurrence: US)
  Receive Date: 20201105
  Receipt Date: 20201105
  Transmission Date: 20210114
  Serious: Yes (Other)
  Sender: FDA-Public Use
  Company Number: None

PATIENT
  Age: 77 Year
  Sex: Female
  Weight: 64.86 kg

DRUGS (5)
  1. LIDOCAINE PRESERVATIVE FREE [Suspect]
     Active Substance: LIDOCAINE
     Indication: ANAESTHESIA EYE
  2. BSS IRRIGATION SOLUTION [Concomitant]
     Dates: start: 20200806
  3. QUICK RINSE [Concomitant]
     Dates: start: 20200802
  4. PROLYSTICA [Concomitant]
     Dates: start: 20200806
  5. HEALON [Suspect]
     Active Substance: HYALURONATE SODIUM

REACTIONS (1)
  - Toxic anterior segment syndrome [None]

NARRATIVE: CASE EVENT DATE: 20200806
